FAERS Safety Report 14110172 (Version 8)
Quarter: 2019Q1

REPORT INFORMATION
  Report Type: Spontaneous
  Country: JP (occurrence: JP)
  Receive Date: 20171020
  Receipt Date: 20190201
  Transmission Date: 20190417
  Serious: Yes (Other)
  Sender: FDA-Public Use
  Company Number: JP-ROCHE-2010929

PATIENT
  Age: 61 Year
  Sex: Female
  Weight: 55.5 kg

DRUGS (7)
  1. G-LASTA [Suspect]
     Active Substance: PEGFILGRASTIM
     Indication: COLONY STIMULATING FACTOR THERAPY
     Dosage: DOSAGE IS UNCERTAIN.??(DAY 2 OF CYCLE 2)
     Route: 058
     Dates: start: 201703, end: 201704
  2. PERJETA [Suspect]
     Active Substance: PERTUZUMAB
     Route: 041
  3. HERCEPTIN [Suspect]
     Active Substance: TRASTUZUMAB
     Route: 041
  4. PERJETA [Suspect]
     Active Substance: PERTUZUMAB
     Indication: BREAST CANCER RECURRENT
     Dosage: INITIAL DOSE
     Route: 041
  5. FILGRASTIM [Concomitant]
     Active Substance: FILGRASTIM
  6. TAXOTERE [Suspect]
     Active Substance: DOCETAXEL
     Indication: BREAST CANCER RECURRENT
     Route: 041
  7. HERCEPTIN [Suspect]
     Active Substance: TRASTUZUMAB
     Indication: BREAST CANCER RECURRENT
     Dosage: INITIAL DOSE
     Route: 041

REACTIONS (3)
  - Aortitis [Recovering/Resolving]
  - Pyrexia [Recovered/Resolved]
  - Neutrophil count decreased [Recovered/Resolved]

NARRATIVE: CASE EVENT DATE: 201703
